FAERS Safety Report 4582840-1 (Version None)
Quarter: 2005Q1

REPORT INFORMATION
  Report Type: 
  Country: None (occurrence: None)
  Receive Date: 20050215
  Receipt Date: 20050203
  Transmission Date: 20050727
  Serious: Yes (Life-Threatening)
  Sender: FDA-Public Use
  Company Number: FR-ROCHE-394646

PATIENT
  Age: 50 Year
  Sex: Male
  Weight: 92 kg

DRUGS (1)
  1. KYTRIL [Suspect]
     Indication: DRUG USE FOR UNKNOWN INDICATION
     Dosage: DOSE REPORTED AS 1 DOSE/CYCLE
     Route: 042
     Dates: start: 20041201

REACTIONS (3)
  - ANGIONEUROTIC OEDEMA [None]
  - MYOCARDIAL ISCHAEMIA [None]
  - SHOCK [None]
